FAERS Safety Report 7323250-3 (Version None)
Quarter: 2011Q1

REPORT INFORMATION
  Report Type: 
  Country: None (occurrence: None)
  Receive Date: 20110301
  Receipt Date: 20110222
  Transmission Date: 20110831
  Serious: Yes (Other)
  Sender: FDA-Public Use
  Company Number: CH-SANOFI-AVENTIS-2011SA011562

PATIENT
  Age: 47 Year
  Sex: Female

DRUGS (6)
  1. HUMIRA [Suspect]
     Dosage: EVERY 15 DAYS
     Route: 058
     Dates: start: 20060601, end: 20070501
  2. METHOTREXATE [Suspect]
     Route: 058
     Dates: start: 20050101, end: 20070401
  3. CYCLOSPORINE [Suspect]
     Route: 048
     Dates: start: 20070401, end: 20070501
  4. PREDNISONE [Concomitant]
     Route: 048
     Dates: start: 20050101, end: 20100101
  5. ARAVA [Suspect]
     Route: 048
     Dates: start: 20060301
  6. ORENCIA [Suspect]
     Route: 041
     Dates: start: 20080201, end: 20110201

REACTIONS (1)
  - BREAST CANCER [None]
